FAERS Safety Report 8890583 (Version 2)
Quarter: 2012Q4

REPORT INFORMATION
  Report Type: 
  Country: JP (occurrence: JP)
  Receive Date: 20121107
  Receipt Date: 20121120
  Transmission Date: 20130627
  Serious: Yes (Other)
  Sender: FDA-Public Use
  Company Number: PHHY2012JP056205

PATIENT

DRUGS (5)
  1. NEORAL [Suspect]
     Indication: APLASTIC ANAEMIA
     Dosage: 150 mg, BID
     Route: 048
     Dates: start: 201206
  2. NEORAL [Suspect]
     Dosage: 200 mg, UNK
     Route: 048
  3. PRIMPERAN [Suspect]
     Dosage: 1 DF, UNK
     Route: 042
  4. THYMOGLOBULINE [Concomitant]
     Route: 041
  5. GASMOTIN [Concomitant]

REACTIONS (3)
  - Extrapyramidal disorder [Recovered/Resolved]
  - Abdominal discomfort [Recovered/Resolved]
  - Hot flush [Recovered/Resolved]
